FAERS Safety Report 4746628-0 (Version None)
Quarter: 2005Q3

REPORT INFORMATION
  Report Type: 
  Country: None (occurrence: None)
  Receive Date: 20050817
  Receipt Date: 20050809
  Transmission Date: 20060218
  Serious: Yes (Hospitalization)
  Sender: FDA-Public Use
  Company Number: 2005PK01508

PATIENT
  Age: 44 Year
  Sex: Male

DRUGS (5)
  1. SEROQUEL [Suspect]
     Route: 048
     Dates: start: 20050613
  2. SEROQUEL [Suspect]
     Dosage: DOSE ADJUSTED
     Route: 048
  3. MELPERONE [Suspect]
     Route: 048
     Dates: start: 20050613
  4. MELPERONE [Suspect]
     Dosage: DOSE ADJUSTED
     Route: 048
  5. RISPERDAL CONSTA [Concomitant]
     Route: 030
     Dates: start: 20041101, end: 20050321

REACTIONS (4)
  - NERVOUSNESS [None]
  - RESTLESSNESS [None]
  - SCHIZOPHRENIA [None]
  - TENSION [None]
